FAERS Safety Report 11993729 (Version 2)
Quarter: 2016Q2

REPORT INFORMATION
  Report Type: Report from Study
  Country: JP (occurrence: JP)
  Receive Date: 20160203
  Receipt Date: 20160512
  Transmission Date: 20160815
  Serious: No
  Sender: FDA-Public Use
  Company Number: JP-EISAI MEDICAL RESEARCH-EC-2016-014029

PATIENT
  Age: 67 Year
  Sex: Female

DRUGS (13)
  1. LENVIMA [Suspect]
     Active Substance: LENVATINIB
     Route: 048
     Dates: start: 20150724, end: 20150810
  2. PYDOXAL [Concomitant]
     Active Substance: PYRIDOXAL
  3. LENVIMA [Suspect]
     Active Substance: LENVATINIB
     Route: 048
     Dates: start: 20150720, end: 20150723
  4. LENVIMA [Suspect]
     Active Substance: LENVATINIB
     Route: 048
     Dates: start: 20150811
  5. NORVASC [Concomitant]
     Active Substance: AMLODIPINE BESYLATE
  6. HIRUDOID [Concomitant]
     Active Substance: GLYCOSAMINOGLYCANS
  7. LENVIMA [Suspect]
     Active Substance: LENVATINIB
     Route: 048
     Dates: start: 20150713, end: 20150715
  8. LENVIMA [Suspect]
     Active Substance: LENVATINIB
     Route: 048
     Dates: start: 20150716, end: 20150719
  9. CANDESARTAN [Concomitant]
     Active Substance: CANDESARTAN
  10. MYSER [Concomitant]
     Active Substance: DIFLUPREDNATE
  11. LENVIMA [Suspect]
     Active Substance: LENVATINIB
     Indication: PAPILLARY THYROID CANCER
     Route: 048
     Dates: start: 20150709, end: 20150712
  12. LEVOTHYROXINE. [Concomitant]
     Active Substance: LEVOTHYROXINE
  13. KERATINAMIN KOWA [Concomitant]

REACTIONS (3)
  - Hypertension [Recovered/Resolved]
  - White blood cell count decreased [Recovered/Resolved]
  - Liver disorder [Recovered/Resolved]

NARRATIVE: CASE EVENT DATE: 20150712
